FAERS Safety Report 9613372 (Version 2)
Quarter: 2013Q4

REPORT INFORMATION
  Report Type: Report from Study
  Country: DE (occurrence: DE)
  Receive Date: 20131010
  Receipt Date: 20131010
  Transmission Date: 20140711
  Serious: Yes (Hospitalization, Other)
  Sender: FDA-Public Use
  Company Number: DE-PFIZER INC-DE-WYE-H08617209

PATIENT
  Age: 54 Year
  Sex: Male

DRUGS (5)
  1. PANTOZOL [Suspect]
     Dosage: 40 MG, 1X/DAY
     Route: 048
     Dates: start: 20051205, end: 20081113
  2. MYFORTIC [Suspect]
     Indication: RENAL TRANSPLANT
     Dosage: 1080 MG, 1X/DAY
     Route: 048
     Dates: start: 20071114, end: 20081015
  3. PROGRAF [Suspect]
     Indication: RENAL TRANSPLANT
     Dosage: 3 MG, 1X/DAY
     Route: 048
     Dates: start: 20071014, end: 20081121
  4. ALLOPURINOL [Suspect]
     Indication: HYPERURICAEMIA
     Dosage: 100 MG, 1X/DAY
     Route: 048
     Dates: start: 20051011, end: 20081113
  5. FOSAMAX [Suspect]
     Dosage: 70 MG, 1X/WK
     Route: 048
     Dates: start: 20080514

REACTIONS (1)
  - Bone marrow failure [Recovered/Resolved]
